FAERS Safety Report 6387279-4 (Version None)
Quarter: 2009Q3

REPORT INFORMATION
  Report Type: 
  Country: None (occurrence: None)
  Receive Date: 20090928
  Receipt Date: 20090918
  Transmission Date: 20100115
  Serious: Yes (Disabling)
  Sender: FDA-Public Use
  Company Number: WAES 0909USA02959

PATIENT
  Age: 47 Year
  Sex: Male

DRUGS (12)
  1. ISENTRESS [Suspect]
     Indication: HIV INFECTION
     Dosage: 2 MG/DAILY/PO
     Route: 048
     Dates: start: 20090809
  2. VIREAD [Suspect]
     Indication: HIV INFECTION
     Dates: start: 20090509
  3. DARUNAVIR UNK [Suspect]
     Indication: HIV INFECTION
     Dates: start: 20090509
  4. RITONAVIR [Suspect]
     Indication: HIV INFECTION
     Dates: start: 20090509
  5. ASPIRIN [Concomitant]
  6. BACTRIM [Concomitant]
  7. COLACE [Concomitant]
  8. OPTIVAR OPHTHALMIC SOLUTION [Concomitant]
  9. RHINOCORT (BECLOMETHASONE DIPROP [Concomitant]
  10. VIAGRA [Concomitant]
  11. LISINOPRIL [Concomitant]
  12. METOPROLOL [Concomitant]

REACTIONS (3)
  - ELECTROCARDIOGRAM ST-T SEGMENT ABNORMAL [None]
  - HYPERTHYROIDISM [None]
  - SINUS TACHYCARDIA [None]
